FAERS Safety Report 4860963-7 (Version None)
Quarter: 2005Q4

REPORT INFORMATION
  Report Type: 
  Country: None (occurrence: None)
  Receive Date: 20051216
  Receipt Date: 20051216
  Transmission Date: 20060501
  Serious: No
  Sender: FDA-Public Use
  Company Number: None

PATIENT
  Age: 24 Year
  Sex: Male
  Weight: 94.8018 kg

DRUGS (2)
  1. HYDROCODONE/APAP    7.5 MG / 750 MG     MALLINCKRODT [Suspect]
     Indication: POSTOPERATIVE ANALGESIA
     Dosage: 2 -IN TOTAL-, BUT 1 AT A TIME    4 HOURS IN BETWEEN    PO
     Route: 048
     Dates: start: 20051214, end: 20051214
  2. HYDROCODONE/APAP    7.5 MG / 750 MG     MALLINCKRODT [Suspect]
     Indication: TONSILLECTOMY
     Dosage: 2 -IN TOTAL-, BUT 1 AT A TIME    4 HOURS IN BETWEEN    PO
     Route: 048
     Dates: start: 20051214, end: 20051214

REACTIONS (8)
  - DRUG INEFFECTIVE [None]
  - FEELING ABNORMAL [None]
  - INADEQUATE ANALGESIA [None]
  - PALPITATIONS [None]
  - PHARMACEUTICAL PRODUCT COMPLAINT [None]
  - POOR QUALITY DRUG ADMINISTERED [None]
  - PROCEDURAL PAIN [None]
  - TONSILLECTOMY [None]
